FAERS Safety Report 5921872-5 (Version None)
Quarter: 2008Q4

REPORT INFORMATION
  Report Type: 
  Country: None (occurrence: None)
  Receive Date: 20081017
  Receipt Date: 20081007
  Transmission Date: 20090506
  Serious: Yes (Other)
  Sender: FDA-Public Use
  Company Number: US-ROCHE-590332

PATIENT
  Sex: Female
  Weight: 81.6 kg

DRUGS (8)
  1. CAPECITABINE [Suspect]
     Dosage: DOSE: 1000 MG AM AND 1000 MG PM
     Route: 048
  2. ATROVENT [Concomitant]
  3. AVASTIN [Concomitant]
  4. ELOXATIN [Concomitant]
  5. LASIX [Concomitant]
  6. CELEXA [Concomitant]
  7. ALBUTEROL [Concomitant]
  8. DUONEB [Concomitant]

REACTIONS (1)
  - METASTASES TO LUNG [None]
